FAERS Safety Report 7274770-1 (Version None)
Quarter: 2011Q1

REPORT INFORMATION
  Report Type: 
  Country: None (occurrence: None)
  Receive Date: 20110204
  Receipt Date: 20110126
  Transmission Date: 20110831
  Serious: Yes (Other)
  Sender: FDA-Public Use
  Company Number: CA-JNJFOC-20110107473

PATIENT
  Sex: Male
  Weight: 75.6 kg

DRUGS (3)
  1. PREDNISONE [Concomitant]
     Dosage: TAPERING
     Route: 048
  2. REMICADE [Suspect]
     Indication: COLITIS ULCERATIVE
     Route: 042
  3. ASACOL [Concomitant]
     Dosage: TID
     Route: 048

REACTIONS (1)
  - LACERATION [None]
